FAERS Safety Report 6981493-2 (Version None)
Quarter: 2010Q3

REPORT INFORMATION
  Report Type: 
  Country: None (occurrence: None)
  Receive Date: 20100914
  Receipt Date: 20100901
  Transmission Date: 20110219
  Serious: Yes (Other)
  Sender: FDA-Public Use
  Company Number: PHHY2010CO58015

PATIENT
  Age: 55 Year
  Sex: Female

DRUGS (1)
  1. ZOLEDRONIC [Suspect]
     Indication: OSTEOPOROSIS
     Dosage: 1 INFUSION PER YEAR
     Route: 042
     Dates: start: 20100626

REACTIONS (5)
  - ASTHENIA [None]
  - CHEST DISCOMFORT [None]
  - HYPERHIDROSIS [None]
  - HYPOTENSION [None]
  - PYREXIA [None]
